FAERS Safety Report 7577097-3 (Version None)
Quarter: 2011Q2

REPORT INFORMATION
  Report Type: 
  Country: None (occurrence: None)
  Receive Date: 20110628
  Receipt Date: 20110626
  Transmission Date: 20111010
  Serious: No
  Sender: FDA-Public Use
  Company Number: US-PFIZER INC-2011141353

PATIENT
  Sex: Male
  Weight: 52.608 kg

DRUGS (8)
  1. XANAX [Concomitant]
     Indication: ANXIETY
     Dosage: 0.5 MG, 2X/DAY
  2. NEURONTIN [Concomitant]
     Indication: NEURALGIA
     Dosage: 300 MG, DAILY
  3. MIRTAZAPINE [Concomitant]
     Indication: BLOOD PRESSURE ABNORMAL
     Dosage: 30 MG, DAILY
  4. TRAZODONE [Concomitant]
     Indication: SLEEP DISORDER
     Dosage: 50 MG, DAILY
  5. ADVAIR DISKUS 100/50 [Concomitant]
     Indication: DYSPNOEA
     Dosage: 1 PUFF TWICE A DAY
  6. CHANTIX [Suspect]
     Indication: SMOKING CESSATION THERAPY
     Dosage: UNK
     Dates: start: 20110615, end: 20110601
  7. CHANTIX [Suspect]
     Dosage: 1 MG, 2X/DAY
     Dates: start: 20110601
  8. SPIRIVA [Concomitant]
     Indication: CHRONIC OBSTRUCTIVE PULMONARY DISEASE
     Dosage: 2-3 PUFFS DAILY

REACTIONS (2)
  - PRURITUS [None]
  - RASH PAPULAR [None]
